FAERS Safety Report 25136797 (Version 1)
Quarter: 2025Q1

REPORT INFORMATION
  Report Type: Other
  Country: ES (occurrence: None)
  Receive Date: 20250328
  Receipt Date: 20250328
  Transmission Date: 20250409
  Serious: Yes (Death, Hospitalization)
  Sender: INCYTE
  Company Number: None

PATIENT
  Age: 72 Year

DRUGS (3)
  1. RUXOLITINIB [Interacting]
     Active Substance: RUXOLITINIB
     Indication: Myocarditis-myositis-myasthenia gravis overlap syndrome
     Dosage: 12 MG, Q12H
  2. ENOXAPARIN SODIUM [Interacting]
     Active Substance: ENOXAPARIN SODIUM
     Indication: Arterial thrombosis
     Dosage: 60 MG, Q12H
  3. METHYLPREDNISOLONE [Interacting]
     Active Substance: METHYLPREDNISOLONE
     Indication: Myocarditis-myositis-myasthenia gravis overlap syndrome
     Dosage: 30 MG, Q12H

REACTIONS (2)
  - Upper gastrointestinal haemorrhage [Fatal]
  - Shock haemorrhagic [Fatal]
